FAERS Safety Report 7552167-4 (Version None)
Quarter: 2011Q2

REPORT INFORMATION
  Report Type: 
  Country: None (occurrence: None)
  Receive Date: 20110616
  Receipt Date: 20040313
  Transmission Date: 20111010
  Serious: Yes (Other)
  Sender: FDA-Public Use
  Company Number: PHHO2004BR18749

PATIENT
  Age: 67 Year
  Sex: Male
  Weight: 56.8 kg

DRUGS (3)
  1. AMITRIPTYLINE HCL [Concomitant]
  2. PHENYTOIN [Concomitant]
  3. DIOVAN [Suspect]
     Dosage: 80 MG, QD
     Route: 048
     Dates: start: 19970709

REACTIONS (2)
  - BRONCHOSPASM [None]
  - ALLERGIC BRONCHITIS [None]
